FAERS Safety Report 9132581 (Version 1)
Quarter: 2013Q1

REPORT INFORMATION
  Report Type: Spontaneous
  Country: AT (occurrence: AT)
  Receive Date: 20130301
  Receipt Date: 20130301
  Transmission Date: 20140127
  Serious: Yes (Hospitalization)
  Sender: FDA-Public Use
  Company Number: AT-ASTRAZENECA-2013SE09352

PATIENT
  Age: 23 Year
  Sex: Male

DRUGS (6)
  1. SEROQUEL [Suspect]
     Indication: DEPRESSION
     Route: 048
     Dates: start: 2011
  2. SEROQUEL [Suspect]
     Indication: DEPRESSION
     Route: 048
  3. WELLBUTRIN XR [Suspect]
     Indication: DEPRESSIVE SYMPTOM
     Route: 065
     Dates: start: 20121207, end: 20121212
  4. WELLBUTRIN XR [Suspect]
     Indication: DEPRESSION
     Route: 065
     Dates: start: 20121207, end: 20121212
  5. WELLBUTRIN XR [Suspect]
     Indication: SUICIDAL IDEATION
     Route: 065
     Dates: start: 20121207, end: 20121212
  6. NOZINAN [Suspect]
     Indication: DEPRESSION
     Route: 065
     Dates: start: 2011

REACTIONS (3)
  - Suicidal ideation [Recovered/Resolved]
  - Depressive symptom [Unknown]
  - Restlessness [Recovered/Resolved]
